FAERS Safety Report 16304479 (Version 1)
Quarter: 2019Q2

REPORT INFORMATION
  Report Type: Spontaneous
  Country: US (occurrence: US)
  Receive Date: 20190510
  Receipt Date: 20190510
  Transmission Date: 20190711
  Serious: Yes (Other)
  Sender: FDA-Public Use
  Company Number: None

PATIENT
  Age: 77 Year
  Sex: Female
  Weight: 58.5 kg

DRUGS (10)
  1. SPIRONOLACTONE 25 MG [Concomitant]
     Active Substance: SPIRONOLACTONE
  2. CALTRATE [Concomitant]
     Active Substance: CALCIUM CARBONATE
  3. ASPIRIN 81MG [Concomitant]
     Active Substance: ASPIRIN
  4. ATORVASTATIN CALCIUM 10MG [Concomitant]
  5. FIBER WELL 10MG [Concomitant]
  6. CLONIDINE HCL TAB 0.1 MG [Suspect]
     Active Substance: CLONIDINE HYDROCHLORIDE
     Indication: HYPERTENSION
     Dosage: ?          QUANTITY:1 TABLET(S);?
     Route: 048
     Dates: start: 20190415, end: 20190502
  7. LISINOPRIL 40 MG [Concomitant]
     Active Substance: LISINOPRIL
  8. ATENOLOL 50MG [Concomitant]
     Active Substance: ATENOLOL
  9. SYNTHROID 0.088MG [Concomitant]
  10. VITAMIN D3 2000 [Concomitant]

REACTIONS (3)
  - Insomnia [None]
  - Blood pressure increased [None]
  - Agitation [None]

NARRATIVE: CASE EVENT DATE: 20190422
